FAERS Safety Report 13089711 (Version 9)
Quarter: 2023Q1

REPORT INFORMATION
  Report Type: Spontaneous
  Country: US (occurrence: US)
  Receive Date: 20170105
  Receipt Date: 20230105
  Transmission Date: 20230418
  Serious: Yes (Hospitalization, Other)
  Sender: FDA-Public Use
  Company Number: US-PFIZER INC-2016604543

PATIENT
  Age: 69 Year
  Sex: Male
  Weight: 89.36 kg

DRUGS (17)
  1. XELJANZ [Suspect]
     Active Substance: TOFACITINIB CITRATE
     Indication: Rheumatoid arthritis
     Dosage: 5 MG, TWICE DAILY
     Route: 048
     Dates: end: 20180120
  2. XELJANZ [Suspect]
     Active Substance: TOFACITINIB CITRATE
     Indication: Polyarthritis
     Dosage: 5 MG, 2X/DAY
     Route: 048
  3. XELJANZ [Suspect]
     Active Substance: TOFACITINIB CITRATE
     Dosage: 5 MG
  4. ELIQUIS [Concomitant]
     Active Substance: APIXABAN
     Indication: Anticoagulant therapy
     Dosage: 5 MG, TWICE DAILY
     Route: 048
  5. FLUTICASONE [Concomitant]
     Active Substance: FLUTICASONE
     Dosage: 2 SPRAYS (DF; 1 SPRAY EACH NOSTRIL), ONCE DAILY
     Route: 045
  6. LIPITOR [Concomitant]
     Active Substance: ATORVASTATIN CALCIUM
     Dosage: 10 MG, ONCE DAILY
     Route: 048
  7. COREG [Concomitant]
     Active Substance: CARVEDILOL
     Indication: Cardiac disorder
     Dosage: 6.25 MG, TWICE DAILY
     Route: 048
  8. FERROUS SULFATE [Concomitant]
     Active Substance: FERROUS SULFATE
     Dosage: 65 MG, ONCE DAILY
     Route: 048
  9. OMEPRAZOLE [Concomitant]
     Active Substance: OMEPRAZOLE
     Indication: Fluid retention
     Dosage: 20 MG, TWICE DAILY
     Route: 048
  10. TRAVATAN [Concomitant]
     Active Substance: TRAVOPROST
     Indication: Cataract operation
     Dosage: UNK (DROPS IN EACH EYE), ONCE DAILY (AT NIGHTTIME)
     Route: 047
  11. LISINOPRIL [Concomitant]
     Active Substance: LISINOPRIL
     Dosage: 10 MG, DAILY
     Route: 048
  12. ISOSORB [Concomitant]
     Dosage: 60 MG, TWICE DAILY
     Route: 048
  13. NOVOLOG [Concomitant]
     Active Substance: INSULIN ASPART
     Indication: Blood glucose abnormal
     Dosage: UNK, AS NEEDED (THREE TIMES A DAY BEFORE EACH MEAL DEPENDING ON BLOOD SUGAR)
  14. CARAFATE [Concomitant]
     Active Substance: SUCRALFATE
     Dosage: 16 MG, TWICE DAILY
     Route: 048
  15. LEVOTHYROXINE [Concomitant]
     Active Substance: LEVOTHYROXINE
     Dosage: 25 UG, ONCE DAILY
     Route: 048
  16. AMIODARONE [Concomitant]
     Active Substance: AMIODARONE
     Dosage: 200 MG, ONCE DAILY
     Route: 048
  17. NOVOLIN NOS [Concomitant]
     Active Substance: INSULIN HUMAN
     Indication: Arthritis
     Dosage: 23 IU, TWICE DAILY

REACTIONS (12)
  - Cerebrovascular accident [Recovered/Resolved with Sequelae]
  - Dizziness [Unknown]
  - Fall [Recovered/Resolved with Sequelae]
  - Limb injury [Recovered/Resolved with Sequelae]
  - Contusion [Recovered/Resolved with Sequelae]
  - Product dose omission issue [Unknown]
  - Bronchitis [Recovered/Resolved]
  - Pain [Unknown]
  - Road traffic accident [Unknown]
  - Pain in extremity [Unknown]
  - Amnesia [Unknown]
  - Daydreaming [Unknown]

NARRATIVE: CASE EVENT DATE: 20161228
